FAERS Safety Report 4358706-9 (Version None)
Quarter: 2004Q2

REPORT INFORMATION
  Report Type: 
  Country: None (occurrence: None)
  Receive Date: 20040517
  Receipt Date: 20030130
  Transmission Date: 20050107
  Serious: Yes (Other)
  Sender: FDA-Public Use
  Company Number: PHEH2003US01133

PATIENT
  Age: 80 Year
  Sex: Male

DRUGS (3)
  1. AREDIA [Suspect]
     Indication: PROSTATE CANCER
     Dosage: UNK, UNK
  2. CHEMOTHERAPEUTICS,OTHER [Concomitant]
  3. WARFARIN SODIUM [Concomitant]
     Indication: PULMONARY EMBOLISM

REACTIONS (15)
  - ABSCESS DRAINAGE [None]
  - BONE DEBRIDEMENT [None]
  - CHRONIC SINUSITIS [None]
  - CYST REMOVAL [None]
  - DENTAL TREATMENT [None]
  - ENDODONTIC PROCEDURE [None]
  - IMPAIRED HEALING [None]
  - INFECTED CYST [None]
  - OSTEONECROSIS [None]
  - PAIN IN JAW [None]
  - PALATAL DISORDER [None]
  - SEQUESTRECTOMY [None]
  - SWELLING [None]
  - TOOTH ABSCESS [None]
  - TOOTH EXTRACTION [None]
